FAERS Safety Report 8842135 (Version 1)
Quarter: 2012Q4

REPORT INFORMATION
  Report Type: 
  Country: AU (occurrence: AU)
  Receive Date: 20121016
  Receipt Date: 20121016
  Transmission Date: 20130627
  Serious: Yes (Death)
  Sender: FDA-Public Use
  Company Number: PHHY2012AU091563

PATIENT
  Sex: Male

DRUGS (1)
  1. VOLTAREN [Suspect]

REACTIONS (1)
  - Death [Fatal]
